FAERS Safety Report 7319897-0 (Version None)
Quarter: 2011Q1

REPORT INFORMATION
  Report Type: 
  Country: None (occurrence: None)
  Receive Date: 20110228
  Receipt Date: 20101119
  Transmission Date: 20110831
  Serious: No
  Sender: FDA-Public Use
  Company Number: A0894275A

PATIENT
  Age: 40 Year
  Sex: Female

DRUGS (3)
  1. SYNTHROID [Concomitant]
  2. LAMICTAL [Suspect]
     Indication: BIPOLAR DISORDER
     Dosage: 100MG PER DAY
     Route: 048
  3. LAMICTAL [Suspect]
     Dosage: 200MG PER DAY
     Route: 048
     Dates: end: 20101029

REACTIONS (3)
  - RASH ERYTHEMATOUS [None]
  - ARTHRALGIA [None]
  - SKIN EXFOLIATION [None]
